FAERS Safety Report 4364660-6 (Version None)
Quarter: 2004Q2

REPORT INFORMATION
  Report Type: 
  Country: None (occurrence: None)
  Receive Date: 20040521
  Receipt Date: 20040430
  Transmission Date: 20050107
  Serious: Yes (Congenital Anomaly)
  Sender: FDA-Public Use
  Company Number: US_0405102717

PATIENT
  Sex: Male

DRUGS (1)
  1. PROZAC [Suspect]

REACTIONS (2)
  - CONGENITAL HEPATOBILIARY ANOMALY [None]
  - DRUG EXPOSURE DURING PREGNANCY [None]
